FAERS Safety Report 4514123-X (Version None)
Quarter: 2004Q4

REPORT INFORMATION
  Report Type: 
  Country: None (occurrence: None)
  Receive Date: 20041124
  Receipt Date: 20041111
  Transmission Date: 20050328
  Serious: Yes (Hospitalization, Disabling)
  Sender: FDA-Public Use
  Company Number: 2004-00675

PATIENT
  Age: 40 Year
  Sex: Female

DRUGS (1)
  1. VELCADE [Suspect]
     Indication: MULTIPLE MYELOMA
     Dosage: 1.30 ML, INTRAVENOUS
     Route: 042
     Dates: start: 20040914, end: 20041015

REACTIONS (3)
  - CHEST PAIN [None]
  - CHILLS [None]
  - ORTHOSTATIC HYPOTENSION [None]
